FAERS Safety Report 4420333-2 (Version None)
Quarter: 2004Q3

REPORT INFORMATION
  Report Type: 
  Country: None (occurrence: None)
  Receive Date: 20040804
  Receipt Date: 20040720
  Transmission Date: 20050211
  Serious: Yes (Other)
  Sender: FDA-Public Use
  Company Number: A03200401941

PATIENT
  Age: 61 Year
  Sex: Male
  Weight: 93.8946 kg

DRUGS (10)
  1. PLAVIX [Suspect]
     Indication: CORONARY ARTERIAL STENT INSERTION
     Dosage: 75 MG QD - ORAL
     Route: 048
     Dates: start: 20040317, end: 20040602
  2. RAMIPRIL [Concomitant]
  3. ATORVASTATIN [Concomitant]
  4. LEVOTHYROXINE SODIUM [Concomitant]
  5. ALLOPURINOL [Concomitant]
  6. PIOGLITAZONE HCL [Concomitant]
  7. GLIPIZIDE [Concomitant]
  8. ESCITALOPRAM OXALATE [Concomitant]
  9. QUETIAPINE FUMARATE [Concomitant]
  10. CLONAZEPAM [Concomitant]

REACTIONS (4)
  - ARTHRALGIA [None]
  - PYREXIA [None]
  - RASH [None]
  - SERUM SICKNESS [None]
